FAERS Safety Report 13074176 (Version 2)
Quarter: 2017Q1

REPORT INFORMATION
  Report Type: Report from Study
  Country: CZ (occurrence: CZ)
  Receive Date: 20161230
  Receipt Date: 20170126
  Transmission Date: 20170428
  Serious: Yes (Hospitalization, Other)
  Sender: FDA-Public Use
  Company Number: CZ-BAXTER-2016BAX064676

PATIENT
  Age: 31 Year
  Sex: Male

DRUGS (39)
  1. RITUXIMAB [Suspect]
     Active Substance: RITUXIMAB
     Indication: NON-HODGKIN^S LYMPHOMA
     Dosage: MOST RECENT DOSE
     Route: 042
     Dates: start: 20161208
  2. VENETOCLAX [Suspect]
     Active Substance: VENETOCLAX
     Indication: DIFFUSE LARGE B-CELL LYMPHOMA
     Route: 048
     Dates: start: 20161121
  3. PARACETAMOLUM [Concomitant]
     Active Substance: ACETAMINOPHEN
     Indication: PREMEDICATION
     Route: 065
     Dates: start: 20161118, end: 20161118
  4. HYDROCORTISONE. [Concomitant]
     Active Substance: HYDROCORTISONE
     Route: 065
     Dates: start: 20161208, end: 20161208
  5. FILGRASTIMUM [Concomitant]
     Route: 065
     Dates: start: 20161214, end: 20161216
  6. AMOXICILLIN/CLAVULANIC ACID [Concomitant]
     Active Substance: AMOXICILLIN\CLAVULANIC ACID
     Indication: INFECTION PROPHYLAXIS
     Route: 065
     Dates: start: 20161201, end: 20161207
  7. PREDNISONUM [Concomitant]
     Active Substance: PREDNISONE
     Indication: PREMEDICATION
     Route: 065
     Dates: start: 20161114, end: 20161117
  8. PARACETAMOLUM [Concomitant]
     Active Substance: ACETAMINOPHEN
     Route: 065
     Dates: start: 20161208, end: 20161208
  9. BISULEPIN HYDROCHLORIDE [Concomitant]
     Active Substance: BISULEPIN HYDROCHLORIDE
     Indication: PREMEDICATION
     Route: 065
     Dates: start: 20161118, end: 20161118
  10. TRAMADOLI HYDROCHLORIDUM [Concomitant]
     Indication: BACK PAIN
     Route: 065
     Dates: start: 20161119, end: 20161122
  11. ENDOXAN 1G [Suspect]
     Active Substance: CYCLOPHOSPHAMIDE
     Indication: NON-HODGKIN^S LYMPHOMA
     Dosage: MOST RECENT DOSE
     Route: 042
     Dates: start: 20161208
  12. RITUXIMAB [Suspect]
     Active Substance: RITUXIMAB
     Indication: DIFFUSE LARGE B-CELL LYMPHOMA
     Route: 042
     Dates: start: 20161118
  13. OMEPRAZOLUM [Concomitant]
     Route: 065
     Dates: start: 20161215, end: 20161219
  14. HYDROCORTISONE. [Concomitant]
     Active Substance: HYDROCORTISONE
     Indication: PREMEDICATION
     Route: 065
     Dates: start: 20161118, end: 20161118
  15. BISULEPIN HYDROCHLORIDE [Concomitant]
     Active Substance: BISULEPIN HYDROCHLORIDE
     Route: 065
     Dates: start: 20161208, end: 20161208
  16. FILGRASTIMUM [Concomitant]
     Indication: PROPHYLAXIS
     Route: 065
     Dates: start: 20161123, end: 20161125
  17. 0,9% SODIUM CHLORIDE INTRAVENOUS INFUSION BP BAXTER [Suspect]
     Active Substance: SODIUM CHLORIDE
     Indication: PROPHYLAXIS
     Route: 065
     Dates: start: 20161118, end: 20161121
  18. PREDNISONE. [Suspect]
     Active Substance: PREDNISONE
     Indication: DIFFUSE LARGE B-CELL LYMPHOMA
     Dosage: 1-5 OF EACH 21 DAY CYCLE
     Route: 048
     Dates: start: 20161118
  19. PREDNISONE. [Suspect]
     Active Substance: PREDNISONE
     Indication: NON-HODGKIN^S LYMPHOMA
     Dosage: 1-5 OF EACH 21 DAY CYCLE, MOST RECENT DOSE
     Route: 048
     Dates: start: 20161212
  20. GRANISETRONUM [Concomitant]
     Route: 065
     Dates: start: 20161208, end: 20161208
  21. FILGRASTIMUM [Concomitant]
     Route: 065
     Dates: start: 20161218, end: 20161219
  22. KALII CHLORIDUM [Concomitant]
     Indication: PROPHYLAXIS
     Route: 065
     Dates: start: 20161120, end: 20161121
  23. DOXORUBICIN [Suspect]
     Active Substance: DOXORUBICIN
     Indication: NON-HODGKIN^S LYMPHOMA
     Dosage: MOST RECENT DOSE
     Route: 042
     Dates: start: 20161208
  24. VINCRISTINE [Suspect]
     Active Substance: VINCRISTINE
     Indication: DIFFUSE LARGE B-CELL LYMPHOMA
     Route: 042
     Dates: start: 20161118
  25. VINCRISTINE [Suspect]
     Active Substance: VINCRISTINE
     Indication: NON-HODGKIN^S LYMPHOMA
     Dosage: MOST RECENT DOSE
     Route: 042
     Dates: start: 20161208
  26. ALLOPURINOLUM [Concomitant]
     Indication: PROPHYLAXIS
     Route: 065
     Dates: start: 20161108, end: 20161201
  27. ALLOPURINOLUM [Concomitant]
     Route: 065
     Dates: start: 20161208, end: 20161212
  28. ALLOPURINOLUM [Concomitant]
     Route: 065
     Dates: start: 20161215, end: 20161219
  29. OMEPRAZOLUM [Concomitant]
     Indication: PROPHYLAXIS AGAINST GASTROINTESTINAL ULCER
     Route: 065
     Dates: start: 20161114, end: 20161130
  30. GRANISETRONUM [Concomitant]
     Indication: PROPHYLAXIS OF NAUSEA AND VOMITING
     Route: 065
     Dates: start: 20161118, end: 20161118
  31. KALII CHLORIDUM [Concomitant]
     Route: 065
     Dates: start: 20161215, end: 20161215
  32. ENDOXAN 1G [Suspect]
     Active Substance: CYCLOPHOSPHAMIDE
     Indication: DIFFUSE LARGE B-CELL LYMPHOMA
     Route: 042
     Dates: start: 20161118
  33. DOXORUBICIN [Suspect]
     Active Substance: DOXORUBICIN
     Indication: DIFFUSE LARGE B-CELL LYMPHOMA
     Route: 042
     Dates: start: 20161118
  34. METAMIZOLUM NATRICUM [Concomitant]
     Indication: BACK PAIN
     Route: 065
     Dates: start: 20161115, end: 20161201
  35. METAMIZOLUM NATRICUM [Concomitant]
     Route: 065
     Dates: start: 20161219, end: 20161220
  36. OMEPRAZOLUM [Concomitant]
     Route: 065
     Dates: start: 20161208, end: 20161212
  37. LACTULOSUM [Concomitant]
     Indication: CONSTIPATION
     Route: 065
     Dates: start: 20161120, end: 20161130
  38. FAKTU [Concomitant]
     Indication: HAEMORRHOIDS
     Route: 065
     Dates: start: 20161201
  39. VENETOCLAX [Suspect]
     Active Substance: VENETOCLAX
     Indication: NON-HODGKIN^S LYMPHOMA
     Dosage: MOST RECENT DOSE
     Route: 048
     Dates: start: 20161214

REACTIONS (2)
  - Optic neuropathy [Recovered/Resolved]
  - Optic neuritis [Unknown]

NARRATIVE: CASE EVENT DATE: 20161214
